FAERS Safety Report 9096209 (Version 1)
Quarter: 2013Q1

REPORT INFORMATION
  Report Type: Spontaneous
  Country: AT (occurrence: AT)
  Receive Date: 20130207
  Receipt Date: 20130207
  Transmission Date: 20140127
  Serious: Yes (Hospitalization)
  Sender: FDA-Public Use
  Company Number: AT-ELI_LILLY_AND_COMPANY-AT201301009566

PATIENT
  Sex: Male

DRUGS (2)
  1. LISPRO [Suspect]
     Indication: DIABETES MELLITUS
     Dosage: 3.5 ML, UNK
     Route: 058
  2. LEVEMIR [Concomitant]
     Dosage: 16 U, QD

REACTIONS (3)
  - Blood glucose increased [Recovered/Resolved]
  - Otitis media [Recovered/Resolved]
  - Tinnitus [Recovered/Resolved]
